FAERS Safety Report 23197863 (Version 2)
Quarter: 2023Q4

REPORT INFORMATION
  Report Type: Report from Study
  Country: PL (occurrence: PL)
  Receive Date: 20231117
  Receipt Date: 20231206
  Transmission Date: 20240110
  Serious: No
  Sender: FDA-Public Use
  Company Number: PL-BIOGEN-2023BI01234916

PATIENT
  Age: 70 Year
  Sex: Female
  Weight: 63.5 kg

DRUGS (9)
  1. ADUCANUMAB [Suspect]
     Active Substance: ADUCANUMAB
     Indication: Dementia Alzheimer^s type
     Dosage: TITRATION PERIOD
     Route: 050
     Dates: start: 20230726, end: 20230726
  2. ADUCANUMAB [Suspect]
     Active Substance: ADUCANUMAB
     Dosage: TITRATION PERIOD
     Route: 050
     Dates: start: 20230823, end: 20230823
  3. ADUCANUMAB [Suspect]
     Active Substance: ADUCANUMAB
     Dosage: TITRATION PERIOD
     Route: 050
     Dates: start: 20230920, end: 20230920
  4. ADUCANUMAB [Suspect]
     Active Substance: ADUCANUMAB
     Dosage: TITRATION PERIOD
     Route: 050
     Dates: start: 20231018, end: 20231018
  5. NEURACEQ [Suspect]
     Active Substance: FLORBETABEN F-18
     Indication: Positron emission tomogram
     Route: 050
     Dates: start: 20230717, end: 20230717
  6. EUTHYROX [Concomitant]
     Active Substance: LEVOTHYROXINE SODIUM
     Route: 050
     Dates: start: 2002
  7. DONEPEZIL [Concomitant]
     Active Substance: DONEPEZIL
     Route: 050
     Dates: start: 20220621
  8. MEMANTINE [Concomitant]
     Active Substance: MEMANTINE
     Route: 050
     Dates: start: 202210
  9. VITAMIN D3 [Concomitant]
     Active Substance: CHOLECALCIFEROL
     Route: 050
     Dates: start: 2002

REACTIONS (2)
  - Amyloid related imaging abnormality-oedema/effusion [Not Recovered/Not Resolved]
  - Amyloid related imaging abnormality-microhaemorrhages and haemosiderin deposits [Not Recovered/Not Resolved]

NARRATIVE: CASE EVENT DATE: 20231103
